FAERS Safety Report 17445064 (Version 2)
Quarter: 2020Q1

REPORT INFORMATION
  Report Type: Spontaneous
  Country: IT (occurrence: IT)
  Receive Date: 20200221
  Receipt Date: 20200309
  Transmission Date: 20200409
  Serious: Yes (Other)
  Sender: FDA-Public Use
  Company Number: IT-ELI_LILLY_AND_COMPANY-IT202002007658

PATIENT
  Age: 52 Year
  Sex: Male

DRUGS (23)
  1. CYTARABINE. [Suspect]
     Active Substance: CYTARABINE
     Indication: DIFFUSE LARGE B-CELL LYMPHOMA
     Dosage: UNK, UNKNOWN
     Route: 065
     Dates: start: 201602, end: 201604
  2. GEMCITABINE HYDROCHLORIDE. [Suspect]
     Active Substance: GEMCITABINE HYDROCHLORIDE
     Indication: DIFFUSE LARGE B-CELL LYMPHOMA
     Dosage: UNK UNK, UNKNOWN
     Route: 065
     Dates: start: 201709, end: 201805
  3. OXALIPLATIN. [Suspect]
     Active Substance: OXALIPLATIN
     Indication: DIFFUSE LARGE B-CELL LYMPHOMA
     Dosage: UNK UNK, UNKNOWN
     Route: 065
     Dates: start: 201709, end: 201805
  4. DEXAMETHASONE. [Suspect]
     Active Substance: DEXAMETHASONE
     Indication: DIFFUSE LARGE B-CELL LYMPHOMA
     Dosage: UNK, UNKNOWN
     Route: 065
     Dates: start: 201602, end: 201604
  5. DOXORUBICIN [Suspect]
     Active Substance: DOXORUBICIN
     Indication: DIFFUSE LARGE B-CELL LYMPHOMA
     Dosage: UNK, UNKNOWN
     Route: 065
     Dates: start: 201507, end: 201510
  6. PIXANTRONE [Concomitant]
     Active Substance: PIXANTRONE
     Indication: PRODUCT USED FOR UNKNOWN INDICATION
     Dosage: UNK, UNKNOWN
     Route: 065
     Dates: start: 201807
  7. CISPLATIN. [Suspect]
     Active Substance: CISPLATIN
     Indication: DIFFUSE LARGE B-CELL LYMPHOMA
     Dosage: UNK UNK, UNKNOWN
     Route: 065
     Dates: start: 201602, end: 201604
  8. BEVACIZUMAB. [Suspect]
     Active Substance: BEVACIZUMAB
     Indication: PRODUCT USED FOR UNKNOWN INDICATION
     Dosage: 10 MG/KG, UNKNOWN
     Route: 065
     Dates: start: 20191210
  9. ETOPOSIDE. [Concomitant]
     Active Substance: ETOPOSIDE
     Indication: PRODUCT USED FOR UNKNOWN INDICATION
     Dosage: UNK, UNKNOWN
     Route: 065
  10. IFOSFAMIDE. [Suspect]
     Active Substance: IFOSFAMIDE
     Indication: DIFFUSE LARGE B-CELL LYMPHOMA
     Dosage: UNK, UNKNOWN
     Route: 065
     Dates: start: 201709, end: 201805
  11. VINCRISTINE [Suspect]
     Active Substance: VINCRISTINE
     Indication: DIFFUSE LARGE B-CELL LYMPHOMA
     Dosage: UNK, UNKNOWN
     Route: 065
     Dates: start: 201507, end: 201510
  12. RITUXIMAB. [Suspect]
     Active Substance: RITUXIMAB
     Dosage: UNK, UNKNOWN
     Route: 065
     Dates: start: 201512, end: 201601
  13. RITUXIMAB. [Suspect]
     Active Substance: RITUXIMAB
     Dosage: UNK, UNKNOWN
     Route: 065
     Dates: start: 201602, end: 201604
  14. RITUXIMAB. [Suspect]
     Active Substance: RITUXIMAB
     Indication: DIFFUSE LARGE B-CELL LYMPHOMA
     Dosage: UNK, UNKNOWN
     Route: 065
     Dates: start: 201709, end: 201805
  15. RITUXIMAB. [Suspect]
     Active Substance: RITUXIMAB
     Dosage: UNK, UNKNOWN
     Route: 065
     Dates: start: 201507, end: 201510
  16. RITUXIMAB. [Suspect]
     Active Substance: RITUXIMAB
     Dosage: UNK, UNKNOWN
     Route: 065
     Dates: start: 20170329, end: 20170706
  17. PREDNISONE. [Suspect]
     Active Substance: PREDNISONE
     Indication: DIFFUSE LARGE B-CELL LYMPHOMA
     Dosage: UNK, UNKNOWN
     Route: 065
     Dates: start: 201507, end: 201510
  18. CYCLOPHOSPHAMIDE. [Suspect]
     Active Substance: CYCLOPHOSPHAMIDE
     Indication: DIFFUSE LARGE B-CELL LYMPHOMA
     Dosage: UNK, UNKNOWN
     Route: 065
     Dates: start: 201507, end: 201510
  19. LENALIDOMIDE [Suspect]
     Active Substance: LENALIDOMIDE
     Indication: DIFFUSE LARGE B-CELL LYMPHOMA
     Dosage: UNK, UNKNOWN
     Route: 065
     Dates: start: 201709, end: 201805
  20. FOTEMUSTINE [Concomitant]
     Active Substance: FOTEMUSTINE
     Indication: PRODUCT USED FOR UNKNOWN INDICATION
     Dosage: UNK, UNKNOWN
     Route: 065
  21. MELPHALAN. [Concomitant]
     Active Substance: MELPHALAN
     Indication: PRODUCT USED FOR UNKNOWN INDICATION
     Dosage: UNK, UNKNOWN
     Route: 065
  22. MITOXANTRONE [Concomitant]
     Active Substance: MITOXANTRONE HYDROCHLORIDE
     Indication: PRODUCT USED FOR UNKNOWN INDICATION
     Dosage: UNK, UNKNOWN
     Route: 065
     Dates: start: 20190322
  23. BENDAMUSTINE [Suspect]
     Active Substance: BENDAMUSTINE
     Indication: DIFFUSE LARGE B-CELL LYMPHOMA
     Dosage: UNK, UNKNOWN
     Route: 065
     Dates: start: 20170329, end: 20170706

REACTIONS (4)
  - Deep vein thrombosis [Unknown]
  - Pulmonary embolism [Unknown]
  - Off label use [Unknown]
  - Pneumonitis [Unknown]

NARRATIVE: CASE EVENT DATE: 20191128
